FAERS Safety Report 10600700 (Version 1)
Quarter: 2014Q4

REPORT INFORMATION
  Report Type: Spontaneous
  Country: US (occurrence: US)
  Receive Date: 20141124
  Receipt Date: 20141124
  Transmission Date: 20150529
  Serious: No
  Sender: FDA-Public Use
  Company Number: US-BIOGENIDEC-2014BI122340

PATIENT
  Age: 36 Year
  Sex: Female

DRUGS (3)
  1. BACLOFEN. [Concomitant]
     Active Substance: BACLOFEN
     Indication: MUSCLE RIGIDITY
  2. BACLOFEN. [Concomitant]
     Active Substance: BACLOFEN
     Indication: MUSCLE TIGHTNESS
  3. TYSABRI [Suspect]
     Active Substance: NATALIZUMAB
     Indication: MULTIPLE SCLEROSIS
     Route: 042
     Dates: start: 20141030

REACTIONS (7)
  - Musculoskeletal disorder [Not Recovered/Not Resolved]
  - Headache [Recovered/Resolved]
  - Faecal incontinence [Unknown]
  - Fall [Recovered/Resolved]
  - Tooth extraction [Unknown]
  - General symptom [Not Recovered/Not Resolved]
  - Flushing [Recovered/Resolved]

NARRATIVE: CASE EVENT DATE: 20141030
